FAERS Safety Report 12647885 (Version 1)
Quarter: 2016Q3

REPORT INFORMATION
  Report Type: Spontaneous
  Country: FR (occurrence: FR)
  Receive Date: 20160812
  Receipt Date: 20160812
  Transmission Date: 20161109
  Serious: Yes (Hospitalization)
  Sender: FDA-Public Use
  Company Number: FR-PFIZER INC-2016373433

PATIENT
  Age: 63 Year
  Sex: Female

DRUGS (12)
  1. KARDEGIC [Concomitant]
     Active Substance: ASPIRIN LYSINE
     Indication: THROMBOSIS PROPHYLAXIS
     Dosage: 75 MG, 1X/DAY
  2. MESTINON [Concomitant]
     Active Substance: PYRIDOSTIGMINE BROMIDE
     Indication: WEIGHT DECREASED
     Dosage: 90 MG (30MG X 3), DAILY
  3. BACTRIM [Suspect]
     Active Substance: SULFAMETHOXAZOLE\TRIMETHOPRIM
     Indication: ANTIFUNGAL PROPHYLAXIS
     Dosage: 3 DF, WEEKLY
     Route: 048
     Dates: start: 201607, end: 201607
  4. LEVOTHYROX [Concomitant]
     Active Substance: LEVOTHYROXINE
     Dosage: 50 UG ON EVEN DAYS, 62.5 UG ON ODD DAYS
  5. ENDOXAN /00021101/ [Suspect]
     Active Substance: CYCLOPHOSPHAMIDE
     Indication: PLASMA CELL MYELOMA
     Dosage: 400 MG, UNK ON DAY 1, DAY 8, DAY 15
     Route: 048
     Dates: start: 201607, end: 201607
  6. LACTULOSE. [Concomitant]
     Active Substance: LACTULOSE
     Indication: WEIGHT DECREASED
     Dosage: 1 DF, 3X/DAY
  7. IMNOVID [Suspect]
     Active Substance: POMALIDOMIDE
     Indication: PLASMA CELL MYELOMA
     Dosage: 4 MG, UNK FROM DAY 1 TO DAY 21
     Route: 048
     Dates: start: 201607, end: 201607
  8. ZELITREX [Suspect]
     Active Substance: VALACYCLOVIR HYDROCHLORIDE
     Indication: INFECTION PROPHYLAXIS
     Dosage: 500 MG, 1X/DAY
     Route: 048
     Dates: start: 201607, end: 201607
  9. INEXIUM /01479302/ [Concomitant]
     Active Substance: ESOMEPRAZOLE MAGNESIUM
     Dosage: 20 MG, 1X/DAY
  10. LEDERFOLINE [Suspect]
     Active Substance: LEUCOVORIN CALCIUM
     Indication: HAEMATOTOXICITY
     Dosage: 25 MG, WEEKLY
     Route: 048
     Dates: start: 201607, end: 201607
  11. LYRICA [Concomitant]
     Active Substance: PREGABALIN
     Dosage: 300 MG, 2X/DAY
  12. NEODEX /00016001/ [Suspect]
     Active Substance: DEXAMETHASONE
     Indication: PLASMA CELL MYELOMA
     Dosage: 40 MG, WEEKLY
     Route: 048
     Dates: start: 201607, end: 201607

REACTIONS (11)
  - Enteritis [None]
  - Pancytopenia [Not Recovered/Not Resolved]
  - Epidermal necrosis [None]
  - Febrile bone marrow aplasia [None]
  - Plasma cell myeloma recurrent [None]
  - Hypotension [None]
  - Diarrhoea [None]
  - Dehydration [None]
  - Eosinophilic cellulitis [None]
  - Dermatitis exfoliative [Recovered/Resolved]
  - Sepsis [None]

NARRATIVE: CASE EVENT DATE: 20160718
